FAERS Safety Report 6983825-8 (Version None)
Quarter: 2010Q3

REPORT INFORMATION
  Report Type: 
  Country: None (occurrence: None)
  Receive Date: 20100914
  Receipt Date: 20090224
  Transmission Date: 20110219
  Serious: No
  Sender: FDA-Public Use
  Company Number: US-WYE-H08357709

PATIENT
  Age: 74 Year
  Sex: Female
  Weight: 54.48 kg

DRUGS (2)
  1. ADVIL LIQUI-GELS [Suspect]
     Indication: ARTHRALGIA
     Dosage: 1 CAPLET EVERY 7 HOURS
     Route: 048
     Dates: start: 20090201
  2. CORTISONE ACETATE [Concomitant]

REACTIONS (1)
  - SKIN EXFOLIATION [None]
